FAERS Safety Report 9542119 (Version 2)
Quarter: 2013Q3

REPORT INFORMATION
  Report Type: Report from Study
  Country: RU (occurrence: RU)
  Receive Date: 20130923
  Receipt Date: 20130927
  Transmission Date: 20140515
  Serious: Yes (Other)
  Sender: FDA-Public Use
  Company Number: RU-ASTELLAS-2013US009898

PATIENT
  Age: 51 Year
  Sex: Female

DRUGS (20)
  1. ERLOTINIB TABLET [Suspect]
     Indication: SMALL INTESTINE CARCINOMA
     Dosage: UNK
     Route: 065
     Dates: end: 201302
  2. ERLOTINIB TABLET [Suspect]
     Indication: SMALL INTESTINE CARCINOMA
  3. GEMZAR [Suspect]
     Indication: SMALL INTESTINE CARCINOMA
     Dosage: UNK
     Route: 065
     Dates: end: 201302
  4. GEMZAR [Suspect]
     Indication: SMALL INTESTINE CARCINOMA
  5. GEMCITABINE HYDROCHLORIDE [Concomitant]
     Indication: SMALL INTESTINE CARCINOMA
     Dosage: 1000 MG/M2, UNKNOWN/D
     Route: 065
     Dates: start: 20130904
  6. GEMCITABINE HYDROCHLORIDE [Concomitant]
     Indication: SMALL INTESTINE CARCINOMA
  7. KYTRIL [Concomitant]
     Indication: CHEMOTHERAPY
     Dosage: 3 MG, UNKNOWN/D
     Route: 042
  8. KYTRIL [Concomitant]
     Indication: CHEMOTHERAPY
     Dosage: 1 MG, UNKNOWN/D
     Route: 048
  9. FOLINIC ACID [Concomitant]
     Indication: SMALL INTESTINE CARCINOMA
     Dosage: UNK
     Route: 065
     Dates: start: 20130314, end: 20130411
  10. FOLINIC ACID [Concomitant]
     Indication: SMALL INTESTINE CARCINOMA
     Dosage: UNK
     Route: 065
     Dates: end: 20130510
  11. FLUOROURACIL [Concomitant]
     Indication: SMALL INTESTINE CARCINOMA
     Dosage: UNK
     Route: 065
     Dates: start: 20130314, end: 20130411
  12. FLUOROURACIL [Concomitant]
     Indication: SMALL INTESTINE CARCINOMA
     Dosage: UNK
     Route: 065
     Dates: end: 20130510
  13. OXALIPLATIN [Concomitant]
     Indication: SMALL INTESTINE CARCINOMA
     Dosage: UNK
     Route: 065
     Dates: start: 20130314, end: 20130411
  14. OXALIPLATIN [Concomitant]
     Dosage: UNK
     Route: 065
     Dates: end: 20130510
  15. IRINOTECAN HCL [Concomitant]
     Indication: SMALL INTESTINE CARCINOMA
     Dosage: UNK
     Route: 065
     Dates: start: 20130314, end: 20130411
  16. IRINOTECAN HCL [Concomitant]
     Indication: SMALL INTESTINE CARCINOMA
     Dosage: UNK
     Route: 065
     Dates: end: 20130510
  17. ABRAXANE [Concomitant]
     Indication: SMALL INTESTINE CARCINOMA
     Dosage: 125 MG/M2, UNKNOWN/D
     Route: 065
     Dates: start: 20130904
  18. ABRAXANE [Concomitant]
     Indication: SMALL INTESTINE CARCINOMA
  19. PACLITAXEL ALBUMIN [Concomitant]
     Indication: PRODUCT USED FOR UNKNOWN INDICATION
     Dosage: UNK
     Route: 065
  20. GLUCOCORTICOIDS [Concomitant]
     Indication: PRODUCT USED FOR UNKNOWN INDICATION
     Dosage: UNK
     Route: 065

REACTIONS (4)
  - Off label use [Unknown]
  - Jaundice cholestatic [Unknown]
  - Malignant neoplasm progression [Unknown]
  - Cough [Unknown]
